FAERS Safety Report 20262445 (Version 11)
Quarter: 2022Q4

REPORT INFORMATION
  Report Type: Report from Study
  Country: US (occurrence: US)
  Receive Date: 20211231
  Receipt Date: 20221229
  Transmission Date: 20230113
  Serious: Yes (Hospitalization)
  Sender: FDA-Public Use
  Company Number: US-NOVARTISTESTPH-NVSC2021US299723

PATIENT
  Age: 62 Year
  Sex: Female
  Weight: 69.8 kg

DRUGS (7)
  1. TREPROSTINIL [Suspect]
     Active Substance: TREPROSTINIL
     Indication: Pulmonary arterial hypertension
     Dosage: 21 NG/KG/MIN, CONT
     Route: 042
     Dates: start: 20211130
  2. TREPROSTINIL [Suspect]
     Active Substance: TREPROSTINIL
     Dosage: 34.5 NG/KG/MIN, CONT
     Route: 042
  3. TREPROSTINIL [Suspect]
     Active Substance: TREPROSTINIL
     Dosage: 50 NG/KG/MIN, CONT
     Route: 058
  4. TREPROSTINIL [Suspect]
     Active Substance: TREPROSTINIL
     Dosage: 60 NG/KG/MIN, CONT
     Route: 042
  5. TREPROSTINIL [Suspect]
     Active Substance: TREPROSTINIL
     Dosage: 60 NG/KG/MIN, CONT
     Route: 042
  6. TREPROSTINIL [Suspect]
     Active Substance: TREPROSTINIL
     Dosage: 65 NG/KG/MIN, CONT
     Route: 042
  7. OPSUMIT [Suspect]
     Active Substance: MACITENTAN
     Indication: Product used for unknown indication
     Dosage: UNK
     Route: 065

REACTIONS (16)
  - Large intestine infection [Unknown]
  - Hypoxia [Unknown]
  - Ascites [Unknown]
  - Pericardial effusion [Unknown]
  - Abdominal pain upper [Unknown]
  - Migraine [Recovered/Resolved]
  - Sinusitis [Unknown]
  - Musculoskeletal discomfort [Not Recovered/Not Resolved]
  - Pain [Recovered/Resolved]
  - Emotional distress [Unknown]
  - Myalgia [Unknown]
  - Nausea [Recovered/Resolved]
  - Dyspnoea [Unknown]
  - Device issue [Unknown]
  - Device infusion issue [Unknown]
  - Device alarm issue [Unknown]

NARRATIVE: CASE EVENT DATE: 20220202
